FAERS Safety Report 9393534 (Version 2)
Quarter: 2014Q2

REPORT INFORMATION
  Report Type: Spontaneous
  Country: FR (occurrence: None)
  Receive Date: 20130705
  Receipt Date: 20140429
  Transmission Date: 20141212
  Serious: Yes (Life-Threatening)
  Sender: FDA-Public Use
  Company Number: 1772598

PATIENT
  Age: 83 Year
  Sex: Female

DRUGS (2)
  1. ISOPROTERENOL HYDROCHLORIDE [Suspect]
     Indication: ATRIOVENTRICULAR BLOCK
     Dosage: 1 DAY
     Route: 041
     Dates: start: 20130612, end: 20130612
  2. DOMPERIDONE [Suspect]
     Indication: NAUSEA
     Dosage: 6 DAY
     Route: 048
     Dates: start: 20130608, end: 20130613

REACTIONS (4)
  - Atrial fibrillation [None]
  - Torsade de pointes [None]
  - Atrioventricular block complete [None]
  - Ventricular fibrillation [None]
